FAERS Safety Report 4967436-1 (Version None)
Quarter: 2006Q2

REPORT INFORMATION
  Report Type: 
  Country: None (occurrence: None)
  Receive Date: 20060410
  Receipt Date: 20060220
  Transmission Date: 20061013
  Serious: Yes (Hospitalization)
  Sender: FDA-Public Use
  Company Number: DK-AMGEN-UK170667

PATIENT
  Age: 41 Year
  Sex: Male

DRUGS (10)
  1. MIMPARA [Suspect]
     Indication: HYPERPARATHYROIDISM SECONDARY
     Route: 065
     Dates: start: 20050608, end: 20050620
  2. ARANESP [Concomitant]
  3. METOPROLOL [Concomitant]
     Route: 048
     Dates: start: 19930101
  4. ENALAPRIL MALEATE [Concomitant]
     Route: 048
     Dates: start: 19930101
  5. FELODIPINE [Concomitant]
     Route: 048
     Dates: start: 19930101
  6. OMEPRAZOLE [Concomitant]
     Route: 048
     Dates: start: 19990101
  7. FOLIC ACID [Concomitant]
     Route: 048
     Dates: start: 19930101
  8. C-VITAMIN [Concomitant]
     Route: 048
     Dates: start: 19930101
  9. B-COMBIN FORTE TABLET [Concomitant]
     Route: 048
     Dates: start: 19930101
  10. ETALPHA [Concomitant]
     Route: 048
     Dates: start: 19930101

REACTIONS (3)
  - AMNESIA [None]
  - CONVULSION [None]
  - DIZZINESS [None]
